FAERS Safety Report 8400880-9 (Version None)
Quarter: 2012Q2

REPORT INFORMATION
  Report Type: 
  Country: None (occurrence: None)
  Receive Date: 20120601
  Receipt Date: 20100121
  Transmission Date: 20120825
  Serious: Yes (Death, Other)
  Sender: FDA-Public Use
  Company Number: JP-BRISTOL-MYERS SQUIBB COMPANY-14897532

PATIENT
  Age: 57 Year
  Sex: Male
  Weight: 60 kg

DRUGS (10)
  1. ABILIFY [Suspect]
     Indication: DELUSION
     Dosage: 11AUG09-17AUG09:12MG(7D) 18AUG-21SEP:24MG(35D) 22SEP-20OCT09:30MG(29D)
     Route: 048
     Dates: start: 20090811, end: 20091020
  2. MAGMITT [Concomitant]
     Dosage: TABLET
     Dates: start: 20090915, end: 20091104
  3. AKINETON [Concomitant]
     Dosage: TABLET
  4. ABILIFY [Suspect]
     Indication: HALLUCINATION
     Dosage: 11AUG09-17AUG09:12MG(7D) 18AUG-21SEP:24MG(35D) 22SEP-20OCT09:30MG(29D)
     Route: 048
     Dates: start: 20090811, end: 20091020
  5. TETRAMIDE [Concomitant]
     Dosage: TABLET
     Dates: start: 20090623, end: 20091104
  6. LUVOX [Concomitant]
     Dosage: TABLET
     Dates: start: 20091006, end: 20091104
  7. RISPERDAL [Concomitant]
     Dates: start: 20091027, end: 20091103
  8. LEXIN [Concomitant]
     Dosage: TABLET
     Dates: end: 20091104
  9. LEVOTOMIN [Concomitant]
     Dosage: TABLET
     Dates: start: 20090811, end: 20091104
  10. ALLEGRA [Concomitant]
     Dosage: TABLET
     Dates: start: 20090602, end: 20091104

REACTIONS (5)
  - HALLUCINATION [None]
  - HYPERTENSION [None]
  - ABNORMAL BEHAVIOUR [None]
  - CEREBRAL INFARCTION [None]
  - DELUSION [None]
